FAERS Safety Report 7394661-5 (Version None)
Quarter: 2011Q2

REPORT INFORMATION
  Report Type: 
  Country: None (occurrence: None)
  Receive Date: 20110405
  Receipt Date: 20110329
  Transmission Date: 20111010
  Serious: Yes (Other)
  Sender: FDA-Public Use
  Company Number: TR-GILEAD-2011-0037541

PATIENT
  Sex: Male
  Weight: 83 kg

DRUGS (1)
  1. HEPSERA [Suspect]
     Indication: HEPATITIS B
     Route: 048
     Dates: start: 20050902, end: 20110309

REACTIONS (2)
  - OSTEOPENIA [None]
  - HYPOPHOSPHATAEMIA [None]
